FAERS Safety Report 15774937 (Version 2)
Quarter: 2019Q1

REPORT INFORMATION
  Report Type: Report from Study
  Country: JP (occurrence: JP)
  Receive Date: 20181230
  Receipt Date: 20190225
  Transmission Date: 20190417
  Serious: Yes (Other)
  Sender: FDA-Public Use
  Company Number: JP-AMGEN-JPNCT2018156503

PATIENT
  Age: 50 Year
  Sex: Male

DRUGS (19)
  1. CINACALCET HCL [Suspect]
     Active Substance: CINACALCET HYDROCHLORIDE
     Dosage: 25 MG, QD
     Route: 048
     Dates: start: 20170319, end: 20170321
  2. BONALON [Concomitant]
     Active Substance: ALENDRONATE SODIUM
     Indication: HYPERCALCAEMIA
     Dosage: 35 MG, QWK
     Route: 048
     Dates: start: 20170405, end: 20170518
  3. ELCITONIN [Concomitant]
     Active Substance: ELCATONIN
     Dosage: 80 IU, UNK
     Route: 065
     Dates: start: 20170318, end: 20170320
  4. CEFAZOLIN [Concomitant]
     Active Substance: CEFAZOLIN
     Indication: HYPERCALCAEMIA
     Dosage: 1 G, UNK
     Route: 041
     Dates: start: 20170403, end: 20170403
  5. ALFACALCIDOL [Concomitant]
     Active Substance: ALFACALCIDOL
     Indication: HYPERCALCAEMIA
     Dosage: 1 MG, UNK
     Route: 048
     Dates: start: 20170404, end: 20170519
  6. CALCICOL [Concomitant]
     Active Substance: CALCIUM GLUCONATE
     Indication: HYPERCALCAEMIA
     Dosage: 10 ML, UNK
     Route: 065
     Dates: start: 20170403, end: 20170403
  7. LASIX [Concomitant]
     Active Substance: FUROSEMIDE
     Indication: HYPERCALCAEMIA
     Dosage: 40 MG, UNK
     Route: 065
     Dates: start: 20170318, end: 20170329
  8. CINACALCET HCL [Suspect]
     Active Substance: CINACALCET HYDROCHLORIDE
     Dosage: 50 MG, QD
     Route: 048
     Dates: start: 20170325, end: 20170328
  9. CALCIUM LACTATE [Concomitant]
     Active Substance: CALCIUM LACTATE
     Indication: HYPERCALCAEMIA
     Dosage: 4 G, UNK
     Route: 048
     Dates: start: 20170405, end: 20170519
  10. ZOLEDRONIC ACID [Concomitant]
     Active Substance: ZOLEDRONIC ACID
     Indication: HYPERCALCAEMIA
     Dosage: 4 MG, UNK
     Route: 042
     Dates: start: 20170328, end: 20170328
  11. CINACALCET HCL [Suspect]
     Active Substance: CINACALCET HYDROCHLORIDE
     Indication: PRODUCT USED FOR UNKNOWN INDICATION
     Dosage: 25 MG, QD
     Route: 048
     Dates: start: 20170317, end: 20170318
  12. CINACALCET HCL [Suspect]
     Active Substance: CINACALCET HYDROCHLORIDE
     Dosage: 75 MG ((25MG+50MG), QD
     Route: 048
     Dates: start: 20170322, end: 20170324
  13. CINACALCET HCL [Suspect]
     Active Substance: CINACALCET HYDROCHLORIDE
     Dosage: 75 MG, BID
     Route: 048
     Dates: start: 20170329, end: 20170402
  14. ELCITONIN [Concomitant]
     Active Substance: ELCATONIN
     Indication: HYPERCALCAEMIA
     Dosage: 40 IU, UNK
     Route: 065
     Dates: start: 20170317, end: 20170317
  15. MAGMITT [Concomitant]
     Active Substance: MAGNESIUM OXIDE
     Indication: CONSTIPATION
     Dosage: 330 MG, UNK
     Route: 048
     Dates: start: 20170327, end: 20170403
  16. CALFINA [Concomitant]
     Active Substance: ALFACALCIDOL
     Indication: HYPERCALCAEMIA
     Dosage: 0.25 MUG, UNK
     Route: 048
     Dates: start: 20170515
  17. CALONAL [Concomitant]
     Active Substance: ACETAMINOPHEN
     Indication: HYPERCALCAEMIA
     Dosage: 300 MG, UNK
     Route: 048
     Dates: start: 20170404, end: 20170406
  18. PETHIDINE [Concomitant]
     Active Substance: MEPERIDINE
     Indication: HYPERCALCAEMIA
     Dosage: 35 MG, UNK
     Route: 065
     Dates: start: 20170330, end: 20170330
  19. ACELIO [Concomitant]
     Active Substance: ACETAMINOPHEN
     Indication: HYPERCALCAEMIA
     Dosage: 1000 MG, UNK
     Route: 042
     Dates: start: 20170404, end: 20170404

REACTIONS (2)
  - Hypophosphataemia [Recovered/Resolved]
  - Off label use [Unknown]

NARRATIVE: CASE EVENT DATE: 20170320
